FAERS Safety Report 4679501-7 (Version None)
Quarter: 2005Q2

REPORT INFORMATION
  Report Type: 
  Country: None (occurrence: None)
  Receive Date: 20050531
  Receipt Date: 20050519
  Transmission Date: 20051028
  Serious: Yes (Other)
  Sender: FDA-Public Use
  Company Number: A0560258A

PATIENT
  Age: 25 Year
  Sex: Female

DRUGS (1)
  1. VENTOLIN [Suspect]

REACTIONS (5)
  - HEADACHE [None]
  - SUICIDE ATTEMPT [None]
  - SYNCOPE [None]
  - TACHYCARDIA [None]
  - VOMITING [None]
